FAERS Safety Report 5754257-5 (Version None)
Quarter: 2008Q2

REPORT INFORMATION
  Report Type: 
  Country: None (occurrence: None)
  Receive Date: 20080530
  Receipt Date: 20080521
  Transmission Date: 20081010
  Serious: Yes (Hospitalization, Other)
  Sender: FDA-Public Use
  Company Number: US-PFIZER INC-2006129453

PATIENT
  Sex: Male
  Weight: 78 kg

DRUGS (1)
  1. CELEBREX [Suspect]
     Indication: OSTEITIS DEFORMANS

REACTIONS (2)
  - AMNESIA [None]
  - MYOCARDIAL INFARCTION [None]
